FAERS Safety Report 10578295 (Version 1)
Quarter: 2014Q4

REPORT INFORMATION
  Report Type: Spontaneous
  Country: US (occurrence: None)
  Receive Date: 20141111
  Receipt Date: 20141111
  Transmission Date: 20150529
  Serious: No
  Sender: FDA-Public Use
  Company Number: None

PATIENT
  Age: 23 Year
  Sex: Female
  Weight: 57 kg

DRUGS (1)
  1. O2 MEDLEY LABS [Suspect]

REACTIONS (2)
  - Dysgeusia [None]
  - Product taste abnormal [None]

NARRATIVE: CASE EVENT DATE: 20141110
